FAERS Safety Report 5011587-2 (Version None)
Quarter: 2006Q2

REPORT INFORMATION
  Report Type: 
  Country: None (occurrence: None)
  Receive Date: 20060524
  Receipt Date: 20060519
  Transmission Date: 20061013
  Serious: Yes (Death, Other)
  Sender: FDA-Public Use
  Company Number: HQWYE665102AUG05

PATIENT
  Age: 58 Year
  Sex: Male
  Weight: 92.5 kg

DRUGS (10)
  1. RAPAMUNE [Suspect]
     Indication: PROPHYLAXIS AGAINST TRANSPLANT REJECTION
     Dosage: 3 MG 1X PER 1 DAY, ORAL
     Route: 048
     Dates: start: 20030314, end: 20060517
  2. ACTIGALL [Concomitant]
  3. HYDROXYZINE [Concomitant]
  4. HEXAVITAMIN (ASCORBIC ACID/ERGOCALCIFEROL/NICOTINAMIDE/RETINOL/RIBOFLA [Concomitant]
  5. BACTRIM (SUILFAMETHOXAZOLE/TRIMETHOPRIM) [Concomitant]
  6. ASPIRIN [Concomitant]
  7. AUGMENTIN '125' [Concomitant]
  8. PREDNISONE TAB [Concomitant]
  9. INDERAL [Concomitant]
  10. HYDROCHLOROTHIAZIDE [Concomitant]

REACTIONS (11)
  - HEPATIC LESION [None]
  - HILAR LYMPHADENOPATHY [None]
  - LUNG NEOPLASM [None]
  - METASTASES TO BONE [None]
  - METASTASES TO LYMPH NODES [None]
  - METASTASES TO SALIVARY GLAND [None]
  - METASTASES TO SPINE [None]
  - METASTATIC MALIGNANT MELANOMA [None]
  - NEOPLASM RECURRENCE [None]
  - RENAL CYST [None]
  - SPLENIC LESION [None]
